FAERS Safety Report 17412238 (Version 1)
Quarter: 2020Q1

REPORT INFORMATION
  Report Type: Other
  Country: DE (occurrence: DE)
  Receive Date: 20200213
  Receipt Date: 20200213
  Transmission Date: 20200409
  Serious: Yes (Other)
  Sender: FDA-Public Use
  Company Number: DE-CELLTRION INC.-2020DE018611

PATIENT

DRUGS (44)
  1. RITUXIMAB (UNKNOWN) [Suspect]
     Active Substance: RITUXIMAB
     Dosage: 790 MG, UNK
     Route: 041
     Dates: start: 20190311
  2. RITUXIMAB (UNKNOWN) [Suspect]
     Active Substance: RITUXIMAB
     Dosage: 790 MG, UNK
     Route: 041
     Dates: start: 20181029, end: 20181029
  3. CYCLOPHOSPHAMIDE. [Suspect]
     Active Substance: CYCLOPHOSPHAMIDE
     Dosage: 1600 MG UNK
     Route: 041
     Dates: start: 20181211, end: 20181211
  4. CYCLOPHOSPHAMIDE. [Suspect]
     Active Substance: CYCLOPHOSPHAMIDE
     Dosage: 1600 MG UNK
     Route: 041
     Dates: start: 20181120, end: 20181120
  5. DOXORUBICIN [Suspect]
     Active Substance: DOXORUBICIN
     Dosage: 100 MG UNK
     Route: 041
     Dates: start: 20181120, end: 20181120
  6. RITUXIMAB (UNKNOWN) [Suspect]
     Active Substance: RITUXIMAB
     Indication: DIFFUSE LARGE B-CELL LYMPHOMA
     Dosage: 790 MG, UNK
     Route: 041
     Dates: start: 20190128, end: 20190128
  7. RITUXIMAB (UNKNOWN) [Suspect]
     Active Substance: RITUXIMAB
     Dosage: 790 MG, UNK
     Route: 041
     Dates: start: 20181008, end: 20181008
  8. RITUXIMAB (UNKNOWN) [Suspect]
     Active Substance: RITUXIMAB
     Dosage: 790 MG, UNK
     Route: 041
     Dates: start: 20181119, end: 20181119
  9. PARACETAMOL [Concomitant]
     Active Substance: ACETAMINOPHEN
     Indication: PROPHYLAXIS
     Dosage: 500 MG, UNK
     Route: 048
     Dates: start: 20181008
  10. ACICLOVIR [Concomitant]
     Active Substance: ACYCLOVIR
     Indication: PROPHYLAXIS
     Dosage: 200 MG, UNK
     Route: 048
     Dates: start: 20181008
  11. RITUXIMAB (UNKNOWN) [Suspect]
     Active Substance: RITUXIMAB
     Dosage: 790 MG, UNK
     Route: 041
     Dates: start: 20190218, end: 20190218
  12. RITUXIMAB (UNKNOWN) [Suspect]
     Active Substance: RITUXIMAB
     Dosage: 790 MG, UNK
     Route: 041
     Dates: start: 20190128, end: 20190128
  13. DOXORUBICIN [Suspect]
     Active Substance: DOXORUBICIN
     Indication: DIFFUSE LARGE B-CELL LYMPHOMA
     Dosage: 100 MG UNK
     Route: 041
     Dates: start: 20181030, end: 20181030
  14. DOXORUBICIN [Suspect]
     Active Substance: DOXORUBICIN
     Dosage: 100 MG UNK
     Route: 041
     Dates: start: 20190108, end: 20190108
  15. DOXORUBICIN [Suspect]
     Active Substance: DOXORUBICIN
     Dosage: 100 MG UNK
     Route: 041
     Dates: start: 20181009, end: 20181009
  16. VINCRISTINE [Suspect]
     Active Substance: VINCRISTINE
     Indication: DIFFUSE LARGE B-CELL LYMPHOMA
     Dosage: 2 MG, UNK
     Route: 041
     Dates: start: 20181120, end: 20181120
  17. VINCRISTINE [Suspect]
     Active Substance: VINCRISTINE
     Dosage: 2 MG, UNK
     Route: 041
     Dates: start: 20190108, end: 20190108
  18. GRANISETRON [Concomitant]
     Active Substance: GRANISETRON
     Indication: PROPHYLAXIS
     Dosage: 1 MG UNK
     Route: 042
     Dates: start: 20181008
  19. RITUXIMAB (UNKNOWN) [Suspect]
     Active Substance: RITUXIMAB
     Dosage: 790 MG, UNK
     Route: 041
     Dates: start: 20181008, end: 20181008
  20. CYCLOPHOSPHAMIDE. [Suspect]
     Active Substance: CYCLOPHOSPHAMIDE
     Dosage: 1600 MG UNK
     Route: 041
     Dates: start: 20181009, end: 20181009
  21. VINCRISTINE [Suspect]
     Active Substance: VINCRISTINE
     Dosage: 2 MG, UNK
     Route: 041
     Dates: start: 20190129, end: 20190129
  22. VINCRISTINE [Suspect]
     Active Substance: VINCRISTINE
     Dosage: 2 MG, UNK
     Route: 041
     Dates: start: 20181009, end: 20181009
  23. PREDNISONE. [Suspect]
     Active Substance: PREDNISONE
     Dosage: 400 MG, UNK
     Route: 048
     Dates: start: 20181121, end: 20181124
  24. CYCLOPHOSPHAMIDE. [Suspect]
     Active Substance: CYCLOPHOSPHAMIDE
     Dosage: 1600 MG UNK
     Route: 041
     Dates: start: 20190108, end: 20190108
  25. PREDNISONE. [Suspect]
     Active Substance: PREDNISONE
     Dosage: 400 MG, UNK
     Route: 048
     Dates: start: 20181212, end: 20181215
  26. PREDNISONE. [Suspect]
     Active Substance: PREDNISONE
     Dosage: 400 MG, UNK
     Route: 048
     Dates: start: 20181010, end: 20181013
  27. PREDNISONE. [Suspect]
     Active Substance: PREDNISONE
     Dosage: 400 MG, UNK
     Route: 048
     Dates: start: 20190130, end: 20190202
  28. RITUXIMAB (UNKNOWN) [Suspect]
     Active Substance: RITUXIMAB
     Dosage: 790 MG, UNK
     Route: 041
     Dates: start: 20181008, end: 20181008
  29. RITUXIMAB (UNKNOWN) [Suspect]
     Active Substance: RITUXIMAB
     Dosage: 790 MG, UNK
     Route: 041
     Dates: start: 20181210, end: 20181210
  30. VINCRISTINE [Suspect]
     Active Substance: VINCRISTINE
     Dosage: 2 MG, UNK
     Route: 041
     Dates: start: 20181211, end: 20181211
  31. PREDNISONE. [Suspect]
     Active Substance: PREDNISONE
     Dosage: 400 MG, UNK
     Route: 048
     Dates: start: 20190108, end: 20190111
  32. PREDNISONE. [Suspect]
     Active Substance: PREDNISONE
     Dosage: 400 MG, UNK
     Route: 048
     Dates: start: 20181212, end: 20181215
  33. ONDANSETRON [Concomitant]
     Active Substance: ONDANSETRON
     Indication: PROPHYLAXIS
     Dosage: 8 MG, UNK
     Route: 048
     Dates: start: 20181119
  34. MESNA. [Concomitant]
     Active Substance: MESNA
     Indication: PROPHYLAXIS
     Dosage: UNK
     Route: 042
     Dates: start: 20181008
  35. CYCLOPHOSPHAMIDE. [Suspect]
     Active Substance: CYCLOPHOSPHAMIDE
     Dosage: 1600 MG UNK
     Route: 041
     Dates: start: 20181030, end: 20181030
  36. DOXORUBICIN [Suspect]
     Active Substance: DOXORUBICIN
     Dosage: 100 MG UNK
     Route: 041
     Dates: start: 20181211, end: 20181211
  37. DOXORUBICIN [Suspect]
     Active Substance: DOXORUBICIN
     Dosage: 100 MG UNK
     Route: 041
     Dates: start: 20190129, end: 20190129
  38. VINCRISTINE [Suspect]
     Active Substance: VINCRISTINE
     Dosage: 2 MG, UNK
     Route: 041
     Dates: start: 20181030, end: 20181030
  39. PREDNISONE. [Suspect]
     Active Substance: PREDNISONE
     Indication: DIFFUSE LARGE B-CELL LYMPHOMA
     Dosage: 400 MG, UNK
     Route: 048
     Dates: start: 20181031, end: 20181103
  40. COTRIMOXAZOL AL [Concomitant]
     Active Substance: SULFAMETHOXAZOLE\TRIMETHOPRIM
     Indication: PROPHYLAXIS
     Dosage: 960 MG UNK
     Route: 048
     Dates: start: 20181008
  41. UROMITEXAN [Concomitant]
     Active Substance: MESNA
     Indication: PROPHYLAXIS
     Dosage: 400 MG
     Route: 048
     Dates: start: 20181009
  42. RITUXIMAB (UNKNOWN) [Suspect]
     Active Substance: RITUXIMAB
     Dosage: 790 MG, UNK
     Route: 041
     Dates: start: 20190107, end: 20190107
  43. CYCLOPHOSPHAMIDE. [Suspect]
     Active Substance: CYCLOPHOSPHAMIDE
     Indication: DIFFUSE LARGE B-CELL LYMPHOMA
     Dosage: 1600 MG UNK
     Route: 041
     Dates: start: 20190129, end: 20190129
  44. PREDNISOLON [PREDNISOLONE] [Concomitant]
     Active Substance: PREDNISOLONE
     Indication: PROPHYLAXIS
     Dosage: 100 MG, UNK
     Route: 042
     Dates: start: 20181008, end: 20190311

REACTIONS (4)
  - Tendonitis [Not Recovered/Not Resolved]
  - Respiratory tract infection [Recovered/Resolved]
  - Gastrointestinal infection [Recovered/Resolved]
  - Seasonal allergy [Recovered/Resolved]

NARRATIVE: CASE EVENT DATE: 20181129
